FAERS Safety Report 14152096 (Version 1)
Quarter: 2017Q4

REPORT INFORMATION
  Report Type: Report from Study
  Country: US (occurrence: US)
  Receive Date: 20171102
  Receipt Date: 20171102
  Transmission Date: 20180321
  Serious: Yes (Hospitalization, Other)
  Sender: FDA-Public Use
  Company Number: US-TEVA-821687USA

PATIENT
  Age: 61 Year
  Sex: Female
  Weight: 64.06 kg

DRUGS (5)
  1. ICLUSIG [Suspect]
     Active Substance: PONATINIB
     Indication: CHRONIC MYELOID LEUKAEMIA
     Route: 048
     Dates: start: 20170622, end: 20170627
  2. ASPIRIN. [Concomitant]
     Active Substance: ASPIRIN
  3. ICLUSIG [Suspect]
     Active Substance: PONATINIB
     Route: 048
     Dates: start: 20170808
  4. SANDOSTATIN [Concomitant]
     Active Substance: OCTREOTIDE ACETATE
  5. HYDROXYCARBAMIDE [Suspect]
     Active Substance: HYDROXYUREA
     Indication: THROMBOCYTOSIS
     Dates: start: 20170613, end: 20170625

REACTIONS (2)
  - Febrile neutropenia [Recovered/Resolved]
  - Thrombocytopenia [Unknown]

NARRATIVE: CASE EVENT DATE: 201707
